FAERS Safety Report 10263830 (Version 2)
Quarter: 2014Q3

REPORT INFORMATION
  Report Type: Spontaneous
  Country: IL (occurrence: IL)
  Receive Date: 20140627
  Receipt Date: 20140729
  Transmission Date: 20150326
  Serious: Yes (Death, Hospitalization)
  Sender: FDA-Public Use
  Company Number: IL-IPSEN BIOPHARMACEUTICALS, INC.-2014-3125

PATIENT
  Age: 76 Year
  Sex: Female

DRUGS (1)
  1. SOMATULINE AUTOGEL [Suspect]
     Active Substance: LANREOTIDE ACETATE
     Indication: ACROMEGALY
     Dosage: 60 MG
     Route: 058
     Dates: start: 2008

REACTIONS (7)
  - Respiratory failure [Fatal]
  - Pneumonia [Unknown]
  - Cerebral haemorrhage [Unknown]
  - Arrhythmia [Unknown]
  - Endocarditis [Unknown]
  - Renal failure [Fatal]
  - Cerebrovascular accident [Unknown]
